FAERS Safety Report 18723418 (Version 1)
Quarter: 2021Q1

REPORT INFORMATION
  Report Type: Spontaneous
  Country: US (occurrence: US)
  Receive Date: 20210108
  Receipt Date: 20210108
  Transmission Date: 20210419
  Serious: Yes (Hospitalization)
  Sender: FDA-Public Use
  Company Number: None

PATIENT
  Age: 74 Year
  Sex: Male
  Weight: 93.8 kg

DRUGS (2)
  1. IMDEVIMAB (REGN10987) [Suspect]
     Active Substance: IMDEVIMAB
     Indication: COVID-19
     Route: 042
     Dates: start: 20210107, end: 20210107
  2. CASIRIVIMAB (REGN10933) [Suspect]
     Active Substance: CASIRIVIMAB
     Indication: COVID-19
     Route: 042
     Dates: start: 20210107, end: 20210107

REACTIONS (2)
  - Retching [None]
  - Pyrexia [None]

NARRATIVE: CASE EVENT DATE: 20210107
